FAERS Safety Report 9796873 (Version 2)
Quarter: 2014Q1

REPORT INFORMATION
  Report Type: Spontaneous
  Country: JP (occurrence: JP)
  Receive Date: 20140103
  Receipt Date: 20140128
  Transmission Date: 20141002
  Serious: Yes (Other)
  Sender: FDA-Public Use
  Company Number: PHHY2013JP152711

PATIENT
  Sex: 0

DRUGS (1)
  1. AMPICILLIN+SULBACTAM SANDOZ [Suspect]
     Route: 042

REACTIONS (1)
  - Haematuria [Recovered/Resolved]
